FAERS Safety Report 8991172 (Version 1)
Quarter: 2012Q4

REPORT INFORMATION
  Report Type: Spontaneous
  Country: US (occurrence: None)
  Receive Date: 20121219
  Receipt Date: 20121219
  Transmission Date: 20130627
  Serious: Yes (Hospitalization)
  Sender: FDA-Public Use
  Company Number: DKLU1087265

PATIENT
  Age: 14 Month
  Sex: Male

DRUGS (5)
  1. SABRIL [Suspect]
     Indication: INFANTILE SPASMS
     Dates: start: 20121031
  2. ACTH (CORTICOTROPINE) [Concomitant]
     Indication: PRODUCT USED FOR UNKNOWN INDICATION
  3. VALIUM (DIAZEPAM) [Concomitant]
     Indication: PRODUCT USED FOR UNKNOWN INDICATION
  4. KEPPRA (LEVETIRACETAM) [Concomitant]
     Indication: PRODUCT USED FOR UNKNOWN INDICATION
  5. TOPAMAX (TOPIRMATE) [Concomitant]
     Indication: PRODUCT USED FOR UNKNOWN INDICATION

REACTIONS (1)
  - Respiratory distress [None]
